FAERS Safety Report 5230031-3 (Version None)
Quarter: 2007Q1

REPORT INFORMATION
  Report Type: 
  Country: None (occurrence: None)
  Receive Date: 20070206
  Receipt Date: 20060920
  Transmission Date: 20070707
  Serious: No
  Sender: FDA-Public Use
  Company Number: US-GLAXOSMITHKLINE-A0620849A

PATIENT
  Age: 65 Year
  Sex: Female

DRUGS (2)
  1. PAROXETINE HCL [Suspect]
     Indication: DEPRESSION
     Dosage: 30MG PER DAY
     Route: 048
     Dates: start: 20050101, end: 20050101
  2. LIPITOR [Concomitant]

REACTIONS (3)
  - CHEST PAIN [None]
  - CRYING [None]
  - DRUG INEFFECTIVE [None]
